FAERS Safety Report 11534303 (Version 1)
Quarter: 2015Q3

REPORT INFORMATION
  Report Type: Spontaneous
  Country: US (occurrence: None)
  Receive Date: 20150918
  Receipt Date: 20150918
  Transmission Date: 20151125
  Serious: Yes (Hospitalization)
  Sender: FDA-Public Use
  Company Number: None

PATIENT
  Age: 55 Year
  Sex: Female
  Weight: 51.4 kg

DRUGS (5)
  1. ONCASPAR [Suspect]
     Active Substance: PEGASPARGASE
     Dosage: 3100 UNIT
     Dates: end: 20150811
  2. MERCAPTOPURINE. [Suspect]
     Active Substance: MERCAPTOPURINE
     Dates: end: 20150903
  3. METHOTREXATE [Suspect]
     Active Substance: METHOTREXATE
     Dates: end: 20150818
  4. CYCLOPHOSPHAMIDE. [Suspect]
     Active Substance: CYCLOPHOSPHAMIDE
     Dates: end: 20150825
  5. CYTARABINE. [Suspect]
     Active Substance: CYTARABINE
     Dates: end: 20150903

REACTIONS (8)
  - Mental status changes [None]
  - Pleocytosis [None]
  - Nuclear magnetic resonance imaging brain abnormal [None]
  - Neutropenia [None]
  - Pyrexia [None]
  - Therapy cessation [None]
  - Headache [None]
  - Electroencephalogram abnormal [None]

NARRATIVE: CASE EVENT DATE: 20150903
